FAERS Safety Report 23483806 (Version 5)
Quarter: 2025Q2

REPORT INFORMATION
  Report Type: Spontaneous
  Country: US (occurrence: None)
  Receive Date: 20240205
  Receipt Date: 20250519
  Transmission Date: 20250716
  Serious: Yes (Other)
  Sender: INCYTE
  Company Number: US-INCYTE CORPORATION-2024IN000983

PATIENT
  Age: 66 Year

DRUGS (18)
  1. JAKAFI [Suspect]
     Active Substance: RUXOLITINIB
     Indication: Polycythaemia vera
     Dosage: 10 MILLIGRAM, BID
  2. JAKAFI [Suspect]
     Active Substance: RUXOLITINIB
     Dosage: 10 MILLIGRAM, BID
  3. JAKAFI [Suspect]
     Active Substance: RUXOLITINIB
     Dosage: 10 MILLIGRAM, BID
  4. JAKAFI [Suspect]
     Active Substance: RUXOLITINIB
     Dosage: 10 MILLIGRAM, BID
  5. JAKAFI [Suspect]
     Active Substance: RUXOLITINIB
     Dosage: 10 MILLIGRAM, BID
  6. ASPIRIN [Concomitant]
     Active Substance: ASPIRIN
     Indication: Product used for unknown indication
     Route: 065
  7. COENZYME Q10 [Concomitant]
     Active Substance: DIETARY SUPPLEMENT\UBIDECARENONE
     Indication: Product used for unknown indication
     Route: 065
  8. ELIQUIS [Concomitant]
     Active Substance: APIXABAN
     Indication: Product used for unknown indication
     Route: 065
  9. FISH OIL [Concomitant]
     Active Substance: FISH OIL
     Indication: Product used for unknown indication
     Route: 065
  10. LISINOPRIL [Concomitant]
     Active Substance: LISINOPRIL
     Indication: Product used for unknown indication
     Route: 065
  11. SYNTHROID [Concomitant]
     Active Substance: LEVOTHYROXINE SODIUM
     Indication: Product used for unknown indication
     Route: 065
  12. HERBALS\TURMERIC [Concomitant]
     Active Substance: HERBALS\TURMERIC
     Indication: Product used for unknown indication
     Route: 065
  13. VITAMIN C [Concomitant]
     Active Substance: ASCORBIC ACID
     Indication: Product used for unknown indication
     Route: 065
  14. VITAMIN D3 [Concomitant]
     Active Substance: CHOLECALCIFEROL
     Indication: Product used for unknown indication
     Route: 065
  15. ASPIRIN [Concomitant]
     Active Substance: ASPIRIN
     Indication: Product used for unknown indication
     Route: 065
  16. NITROGLYCERIN [Concomitant]
     Active Substance: NITROGLYCERIN
     Indication: Product used for unknown indication
     Route: 065
  17. ICOSAPENT [Concomitant]
     Active Substance: ICOSAPENT
     Indication: Product used for unknown indication
     Route: 065
  18. REPATHA [Concomitant]
     Active Substance: EVOLOCUMAB
     Indication: Product used for unknown indication
     Route: 065

REACTIONS (12)
  - Thrombosis [Not Recovered/Not Resolved]
  - Autoimmune disorder [Not Recovered/Not Resolved]
  - Fatigue [Not Recovered/Not Resolved]
  - Vomiting [Recovering/Resolving]
  - Abdominal discomfort [Recovering/Resolving]
  - Asthenia [Unknown]
  - Product distribution issue [Unknown]
  - Product dose omission issue [Unknown]
  - Product dose omission in error [Unknown]
  - Nausea [Recovering/Resolving]
  - Blood cholesterol increased [Not Recovered/Not Resolved]
  - Weight increased [Unknown]
